APPROVED DRUG PRODUCT: LIDOCAINE
Active Ingredient: LIDOCAINE
Strength: 5%
Dosage Form/Route: OINTMENT;TOPICAL
Application: A212695 | Product #001 | TE Code: AT
Applicant: QUAGEN PHARMACEUTICALS LLC
Approved: Apr 20, 2021 | RLD: No | RS: No | Type: RX